FAERS Safety Report 6892702-2 (Version None)
Quarter: 2010Q3

REPORT INFORMATION
  Report Type: 
  Country: None (occurrence: None)
  Receive Date: 20100731
  Receipt Date: 20080819
  Transmission Date: 20110219
  Serious: No
  Sender: FDA-Public Use
  Company Number: US-PFIZER INC-2008069751

PATIENT
  Sex: Female
  Weight: 80.1 kg

DRUGS (3)
  1. CAMPTOSAR [Suspect]
     Indication: NON-SMALL CELL LUNG CANCER
     Dates: start: 20080601
  2. ATROPINE [Suspect]
     Indication: PROPHYLAXIS
  3. AVASTIN [Concomitant]

REACTIONS (3)
  - ANAEMIA [None]
  - ERYTHEMA [None]
  - RASH [None]
